FAERS Safety Report 25095941 (Version 4)
Quarter: 2025Q4

REPORT INFORMATION
  Report Type: Spontaneous
  Country: EU (occurrence: EU)
  Receive Date: 20250319
  Receipt Date: 20251216
  Transmission Date: 20260118
  Serious: Yes (Life-Threatening, Hospitalization, Other)
  Sender: SANOFI AVENTIS
  Company Number: EU-SA-2025SA079365

PATIENT
  Age: 3 Month
  Sex: Male

DRUGS (10)
  1. MYOZYME [Suspect]
     Active Substance: ALGLUCOSIDASE ALFA
     Indication: Glycogen storage disease type II
     Dosage: 20 MG/KG, Q15D
     Route: 042
     Dates: start: 20230814, end: 20231018
  2. MYOZYME [Suspect]
     Active Substance: ALGLUCOSIDASE ALFA
     Dosage: 20 MG/KG, Q15D, AT 5 ML/H WITH THE RATE SUBSEQUENTLY INCREASED TO 10 ML/H
     Route: 042
     Dates: start: 20231018, end: 20231118
  3. MYOZYME [Suspect]
     Active Substance: ALGLUCOSIDASE ALFA
     Dosage: 20 MG/KG, Q15D 3 ML/H
     Route: 042
     Dates: start: 2023
  4. RITUXIMAB [Concomitant]
     Active Substance: RITUXIMAB
     Indication: Premedication
     Dosage: 12.5 MG/KG (TOTAL 62.5 MG), QW
     Dates: start: 20230813, end: 20230903
  5. RITUXIMAB [Concomitant]
     Active Substance: RITUXIMAB
     Indication: Glycogen storage disease type II
  6. METHOTREXATE [Concomitant]
     Active Substance: METHOTREXATE
     Indication: Glycogen storage disease type II
     Dosage: 0.4 MG/KG (2 MG), QD
     Route: 058
     Dates: start: 20230814, end: 20230816
  7. IMMUNE GLOBULIN NOS [Concomitant]
     Active Substance: IMMUNE GLOBULIN NOS
     Indication: Glycogen storage disease type II
     Dosage: 400 MG/KG (2 G INFUSED IN 6-7 H)
     Route: 042
     Dates: start: 20230812
  8. PROPRANOLOL [Concomitant]
     Active Substance: PROPRANOLOL HYDROCHLORIDE
     Dosage: UNK
     Dates: start: 202307
  9. ACETAMINOPHEN [Concomitant]
     Active Substance: ACETAMINOPHEN
     Indication: Premedication
     Dosage: 40 MG, QW
     Route: 042
     Dates: start: 20230813, end: 20230903
  10. DEXCHLORPHENIRAMINE [Concomitant]
     Active Substance: DEXCHLORPHENIRAMINE
     Indication: Premedication
     Dosage: UNK
     Dates: start: 2023

REACTIONS (15)
  - Cardiac arrest [Recovering/Resolving]
  - Electrocardiogram ST segment elevation [Recovering/Resolving]
  - Hypoperfusion [Recovering/Resolving]
  - Hypotonia [Unknown]
  - Asthenia [Unknown]
  - Grunting [Unknown]
  - Rash erythematous [Unknown]
  - Papule [Unknown]
  - Irritability [Unknown]
  - Agitation [Unknown]
  - Tachycardia [Unknown]
  - Pallor [Unknown]
  - Hypotension [Unknown]
  - Wheezing [Unknown]
  - Hyperhidrosis [Unknown]

NARRATIVE: CASE EVENT DATE: 20231018
